FAERS Safety Report 24145490 (Version 1)
Quarter: 2024Q3

REPORT INFORMATION
  Report Type: Spontaneous
  Country: US (occurrence: US)
  Receive Date: 20240729
  Receipt Date: 20240729
  Transmission Date: 20241016
  Serious: No
  Sender: AMARIN
  Company Number: US-Amarin Pharma  Inc-2024AMR000372

PATIENT
  Age: 79 Year
  Sex: Male

DRUGS (1)
  1. VASCEPA [Suspect]
     Active Substance: ICOSAPENT ETHYL
     Indication: Product used for unknown indication
     Dosage: 2 CAPSULES IN AM DAILY
     Dates: start: 2022

REACTIONS (6)
  - Poor quality product administered [Unknown]
  - Prescribed underdose [Unknown]
  - Off label use [Unknown]
  - Product physical issue [Unknown]
  - Product colour issue [Unknown]
  - Product odour abnormal [Unknown]
